FAERS Safety Report 22337031 (Version 1)
Quarter: 2023Q2

REPORT INFORMATION
  Report Type: Spontaneous
  Country: US (occurrence: None)
  Receive Date: 20230517
  Receipt Date: 20230517
  Transmission Date: 20230721
  Serious: No
  Sender: FDA-Public Use
  Company Number: None

PATIENT
  Age: 25 Year
  Sex: Female
  Weight: 42.75 kg

DRUGS (3)
  1. AMPHETAMINE ASPARTATE\DEXTROAMPHETAMINE SACCHARATE [Suspect]
     Active Substance: AMPHETAMINE ASPARTATE\DEXTROAMPHETAMINE SACCHARATE
     Indication: Attention deficit hyperactivity disorder
     Dosage: 1 CAPSULE DAILY ORAL?
     Route: 048
     Dates: start: 20230419
  2. Zoloft 200mg [Concomitant]
  3. Woman^s daily vitamin [Concomitant]

REACTIONS (13)
  - Vertigo [None]
  - Brain fog [None]
  - Decreased appetite [None]
  - Weight decreased [None]
  - Asthenia [None]
  - Insomnia [None]
  - Poverty of thought content [None]
  - Memory impairment [None]
  - Feeling abnormal [None]
  - Product formulation issue [None]
  - Pain [None]
  - Dissociative disorder [None]
  - Poor quality sleep [None]

NARRATIVE: CASE EVENT DATE: 20230419
